FAERS Safety Report 12622308 (Version 2)
Quarter: 2016Q3

REPORT INFORMATION
  Report Type: Spontaneous
  Country: US (occurrence: US)
  Receive Date: 20160804
  Receipt Date: 20160902
  Transmission Date: 20161109
  Serious: No
  Sender: FDA-Public Use
  Company Number: US-PFIZER INC-2016350714

PATIENT
  Age: 55 Year
  Sex: Female
  Weight: 82 kg

DRUGS (3)
  1. ADVIL [Suspect]
     Active Substance: IBUPROFEN
     Indication: HEADACHE
     Dosage: UNK, SINGLE
     Dates: start: 20160706, end: 20160706
  2. ADVIL ALLERGY SINUS [Suspect]
     Active Substance: CHLORPHENIRAMINE MALEATE\IBUPROFEN\PSEUDOEPHEDRINE HYDROCHLORIDE
     Indication: SINUS PAIN
     Dosage: 1 DF, 2X/DAY
     Dates: start: 20160706, end: 20160707
  3. ADVIL ALLERGY SINUS [Suspect]
     Active Substance: CHLORPHENIRAMINE MALEATE\IBUPROFEN\PSEUDOEPHEDRINE HYDROCHLORIDE
     Indication: HYPERSENSITIVITY
     Dosage: UNK
     Dates: start: 20160705

REACTIONS (7)
  - Drug ineffective [Recovered/Resolved]
  - Discomfort [Unknown]
  - Insomnia [Recovered/Resolved]
  - Condition aggravated [Recovered/Resolved]
  - Sleep disorder [Recovered/Resolved]
  - Poor quality sleep [Recovered/Resolved]
  - Headache [Recovered/Resolved]

NARRATIVE: CASE EVENT DATE: 201607
